FAERS Safety Report 4921230-6 (Version None)
Quarter: 2006Q1

REPORT INFORMATION
  Report Type: 
  Country: None (occurrence: None)
  Receive Date: 20060221
  Receipt Date: 20060207
  Transmission Date: 20060701
  Serious: Yes (Hospitalization)
  Sender: FDA-Public Use
  Company Number: 200610155BFR

PATIENT
  Age: 56 Year
  Sex: Female

DRUGS (20)
  1. CIPROFLOXACIN HCL [Suspect]
     Indication: HODGKIN'S DISEASE
     Dosage: 400 MG, QD, INTRAVENOUS
     Route: 042
     Dates: start: 20051009, end: 20051011
  2. ATARAX [Suspect]
     Dosage: 50 MG, QD, ORAL
     Route: 048
     Dates: start: 20051009, end: 20051013
  3. ATARAX [Suspect]
     Dosage: 50 MG, QD, ORAL
     Route: 048
     Dates: start: 20051024, end: 20051026
  4. ATARAX [Suspect]
     Dosage: 50 MG, QD, ORAL
     Route: 048
     Dates: start: 20051028, end: 20051031
  5. NATULAN (PROCARBAZINE HYDROCHLORIDE) [Suspect]
     Indication: HODGKIN'S DISEASE
     Dosage: QD, ORAL
     Route: 048
     Dates: start: 20051003, end: 20051008
  6. NATULAN (PROCARBAZINE HYDROCHLORIDE) [Suspect]
     Indication: HODGKIN'S DISEASE
     Dosage: QD, ORAL
     Route: 048
     Dates: start: 20051017, end: 20051023
  7. ONCOVIN [Suspect]
     Indication: HODGKIN'S DISEASE
     Dosage: INTRAVENOUS
     Route: 042
     Dates: start: 20051003, end: 20051004
  8. ONCOVIN [Suspect]
     Indication: HODGKIN'S DISEASE
     Dosage: INTRAVENOUS
     Route: 042
     Dates: start: 20051017, end: 20051018
  9. ACETAMINOPHEN [Suspect]
     Indication: VIRAL INFECTION
     Dosage: 3 G, TOTAL DAILY, INTRAVENOUS
     Route: 042
     Dates: start: 20051009, end: 20051012
  10. ACETAMINOPHEN [Suspect]
     Indication: VIRAL INFECTION
     Dosage: 3 G, TOTAL DAILY, INTRAVENOUS
     Route: 042
     Dates: start: 20051017, end: 20051018
  11. ACETAMINOPHEN [Suspect]
     Indication: VIRAL INFECTION
     Dosage: 3 G, TOTAL DAILY, INTRAVENOUS
     Route: 042
     Dates: start: 20051018, end: 20051020
  12. ACETAMINOPHEN [Suspect]
     Indication: VIRAL INFECTION
     Dosage: 3 G, TOTAL DAILY, INTRAVENOUS
     Route: 042
     Dates: start: 20051102, end: 20051103
  13. OMEPRAZOLE [Concomitant]
  14. AUGMENTIN '125' [Concomitant]
  15. LASILIX [Concomitant]
  16. KALEORID [Concomitant]
  17. CLORMETHINE [Concomitant]
  18. CORTANCYL [Concomitant]
  19. HEPARIN [Concomitant]
  20. SOLUPRED [Concomitant]

REACTIONS (18)
  - ALVEOLITIS [None]
  - APLASTIC ANAEMIA [None]
  - COUGH [None]
  - DRUG ERUPTION [None]
  - DYSPNOEA [None]
  - ERYTHEMA [None]
  - HAEMOGLOBIN DECREASED [None]
  - INFLAMMATION [None]
  - LEUKOPENIA [None]
  - LUNG DISORDER [None]
  - OBSTRUCTIVE AIRWAYS DISORDER [None]
  - PYREXIA [None]
  - RALES [None]
  - RASH MACULO-PAPULAR [None]
  - RESPIRATORY FAILURE [None]
  - SKIN LESION [None]
  - SKIN NECROSIS [None]
  - THROMBOCYTOPENIA [None]
